FAERS Safety Report 8832028 (Version 2)
Quarter: 2012Q4

REPORT INFORMATION
  Report Type: 
  Country: US (occurrence: US)
  Receive Date: 20121009
  Receipt Date: 20121128
  Transmission Date: 20130627
  Serious: Yes (Other)
  Sender: FDA-Public Use
  Company Number: US-JNJFOC-20121001921

PATIENT
  Sex: Female
  Weight: 54.43 kg

DRUGS (5)
  1. XARELTO [Suspect]
     Indication: CEREBROVASCULAR ACCIDENT PROPHYLAXIS
     Route: 048
     Dates: start: 201209
  2. XARELTO [Suspect]
     Indication: ATRIAL FIBRILLATION
     Route: 048
     Dates: start: 201209
  3. ALL OTHER THERAPEUTIC PRODUCTS [Concomitant]
     Indication: BLOOD PRESSURE
  4. TUMS [Concomitant]
     Indication: MINERAL SUPPLEMENTATION
  5. INSULIN [Concomitant]
     Indication: DIABETES MELLITUS

REACTIONS (1)
  - Blood glucose increased [Not Recovered/Not Resolved]
